FAERS Safety Report 4800672-3 (Version None)
Quarter: 2005Q3

REPORT INFORMATION
  Report Type: 
  Country: None (occurrence: None)
  Receive Date: 20050929
  Receipt Date: 20050907
  Transmission Date: 20060218
  Serious: Yes (Other)
  Sender: FDA-Public Use
  Company Number: 2005BH001926

PATIENT

DRUGS (2)
  1. VINORELBINE TARTRATE [Suspect]
     Indication: NEOPLASM MALIGNANT
  2. ZD0473 (NO. PREF. NAME) [Suspect]
     Indication: NEOPLASM MALIGNANT

REACTIONS (1)
  - PANCYTOPENIA [None]
